FAERS Safety Report 5807963-8 (Version None)
Quarter: 2008Q3

REPORT INFORMATION
  Report Type: 
  Country: None (occurrence: None)
  Receive Date: 20080708
  Receipt Date: 20080625
  Transmission Date: 20090109
  Serious: Yes (Death, Life-Threatening)
  Sender: FDA-Public Use
  Company Number: A-CH2008-21027

PATIENT
  Age: 9 Year
  Sex: Male
  Weight: 21 kg

DRUGS (2)
  1. TRACLEER [Suspect]
     Indication: PULMONARY HYPERTENSION
     Dosage: 31.25 MG, BID, ORAL
     Route: 048
     Dates: start: 20051129, end: 20080611
  2. SILDENAFIL CITRATE [Concomitant]

REACTIONS (5)
  - ARRHYTHMIA [None]
  - DISEASE PROGRESSION [None]
  - OFF LABEL USE [None]
  - PULMONARY HYPERTENSION [None]
  - SUDDEN CARDIAC DEATH [None]
